FAERS Safety Report 7315360-1 (Version None)
Quarter: 2011Q1

REPORT INFORMATION
  Report Type: 
  Country: None (occurrence: None)
  Receive Date: 20110218
  Receipt Date: 20110218
  Transmission Date: 20110831
  Serious: No
  Sender: FDA-Public Use
  Company Number: None

PATIENT
  Age: 54 Year
  Sex: Male
  Weight: 102.0593 kg

DRUGS (1)
  1. TOPIRAMATE [Suspect]
     Indication: HEADACHE
     Dosage: 2/2 MORNING/BEDTIME PO
     Route: 048
     Dates: start: 20110127, end: 20110217

REACTIONS (4)
  - MALAISE [None]
  - BLOOD PRESSURE DECREASED [None]
  - CEREBROVASCULAR ACCIDENT [None]
  - HEADACHE [None]
